FAERS Safety Report 8397892-0 (Version None)
Quarter: 2012Q2

REPORT INFORMATION
  Report Type: 
  Country: None (occurrence: None)
  Receive Date: 20120531
  Receipt Date: 20120529
  Transmission Date: 20120825
  Serious: Yes (Death, Hospitalization)
  Sender: FDA-Public Use
  Company Number: PHHY2012AR046025

PATIENT
  Sex: Male

DRUGS (1)
  1. EXELON [Suspect]
     Indication: MEMORY IMPAIRMENT
     Dosage: TWO PATCH DAILY
     Route: 062

REACTIONS (4)
  - CEREBROVASCULAR ACCIDENT [None]
  - MEDICATION ERROR [None]
  - PNEUMONIA [None]
  - CARDIO-RESPIRATORY ARREST [None]
